FAERS Safety Report 4862234-1 (Version None)
Quarter: 2005Q4

REPORT INFORMATION
  Report Type: 
  Country: None (occurrence: None)
  Receive Date: 20051201
  Receipt Date: 20050813
  Transmission Date: 20060501
  Serious: No
  Sender: FDA-Public Use
  Company Number: 2005PV001176

PATIENT
  Age: 60 Year
  Sex: Female
  Weight: 74.8435 kg

DRUGS (13)
  1. BYETTA [Suspect]
     Indication: DIABETES MELLITUS NON-INSULIN-DEPENDENT
     Dosage: SEE IMAGE
     Route: 058
     Dates: start: 20050705, end: 20050803
  2. BYETTA [Suspect]
     Indication: DIABETES MELLITUS NON-INSULIN-DEPENDENT
     Dosage: SEE IMAGE
     Route: 058
     Dates: start: 20050804
  3. PHENERGAN [Suspect]
     Indication: NAUSEA
     Dosage: 25 MG; UNKNOWN
     Route: 065
     Dates: start: 20050101, end: 20050101
  4. GLUCOVANCE [Concomitant]
  5. LIPITOR [Concomitant]
  6. ATENOLOL [Concomitant]
  7. ALTACE [Concomitant]
  8. HYDROCHLOROTHIAZIDE [Concomitant]
  9. IMIPARAMINE [Concomitant]
  10. PLAVIX [Concomitant]
  11. FUROSEMIDE [Concomitant]
  12. NEXIUM [Concomitant]
  13. ASPIRIN [Concomitant]

REACTIONS (8)
  - BLOOD GLUCOSE INCREASED [None]
  - DRUG EFFECT DECREASED [None]
  - FEELING JITTERY [None]
  - INJECTION SITE ERYTHEMA [None]
  - NAUSEA [None]
  - SOMNOLENCE [None]
  - URTICARIA [None]
  - VOMITING [None]
